FAERS Safety Report 23706698 (Version 10)
Quarter: 2024Q4

REPORT INFORMATION
  Report Type: Spontaneous
  Country: US (occurrence: US)
  Receive Date: 20240404
  Receipt Date: 20241023
  Transmission Date: 20250114
  Serious: Yes (Hospitalization)
  Sender: PFIZER
  Company Number: US-PFIZER INC-PV202400042523

PATIENT
  Age: 84 Year
  Sex: Female
  Weight: 80.74 kg

DRUGS (1)
  1. TIKOSYN [Suspect]
     Active Substance: DOFETILIDE
     Indication: Atrial fibrillation
     Dosage: 250 MG, 2X/DAY, (TAKES 1 - 250 IN THE MORNING AND TAKES 1 - 250 AT NIGHT)

REACTIONS (7)
  - Miosis [Unknown]
  - Otolithiasis [Unknown]
  - Dizziness [Not Recovered/Not Resolved]
  - Gait disturbance [Unknown]
  - Wrong strength [Unknown]
  - Mydriasis [Unknown]
  - Headache [Unknown]

NARRATIVE: CASE EVENT DATE: 20240101
